FAERS Safety Report 13025464 (Version 1)
Quarter: 2016Q4

REPORT INFORMATION
  Report Type: Spontaneous
  Country: US (occurrence: US)
  Receive Date: 20161214
  Receipt Date: 20161214
  Transmission Date: 20170207
  Serious: No
  Sender: FDA-Public Use
  Company Number: PHHY2016US171357

PATIENT
  Age: 20 Year
  Sex: Female

DRUGS (1)
  1. CAMBIA [Suspect]
     Active Substance: DICLOFENAC POTASSIUM
     Indication: POST-TRAUMATIC HEADACHE
     Dosage: 50 MG, UNK (1 PACKET WITH 1-2 OUNCES OF WATER AS A SINGLE DOSE)
     Route: 048
     Dates: start: 20161109

REACTIONS (2)
  - Rash [Not Recovered/Not Resolved]
  - Product use issue [Not Recovered/Not Resolved]

NARRATIVE: CASE EVENT DATE: 20161109
